FAERS Safety Report 8407801-3 (Version None)
Quarter: 2012Q2

REPORT INFORMATION
  Report Type: 
  Country: None (occurrence: None)
  Receive Date: 20120604
  Receipt Date: 20120528
  Transmission Date: 20120825
  Serious: Yes (Other)
  Sender: FDA-Public Use
  Company Number: PHHY2012BR034818

PATIENT
  Age: 79 Year
  Sex: Male

DRUGS (1)
  1. FORMOTEROL FUMARATE [Suspect]
     Indication: BRONCHITIS
     Dosage: 2 DF (2 INHALATIONS DAILY)

REACTIONS (2)
  - TREMOR [None]
  - PARKINSON'S DISEASE [None]
